FAERS Safety Report 9002070 (Version 3)
Quarter: 2013Q1

REPORT INFORMATION
  Report Type: Spontaneous
  Country: CA (occurrence: CA)
  Receive Date: 20130107
  Receipt Date: 20130125
  Transmission Date: 20140127
  Serious: Yes (Hospitalization, Other)
  Sender: FDA-Public Use
  Company Number: CA-AMGEN-CANSP2012083888

PATIENT
  Age: 69 Year
  Sex: Female
  Weight: 54.55 kg

DRUGS (8)
  1. PROLIA [Suspect]
     Indication: OSTEOPOROSIS
     Dosage: 60 MG, Q6MO
     Dates: start: 20120116, end: 20120716
  2. LIPITOR [Concomitant]
     Dosage: UNK
     Dates: start: 201206, end: 20121205
  3. BISOPROLOL [Concomitant]
  4. ADVAIR [Concomitant]
  5. LASIX                              /00032601/ [Concomitant]
  6. SYNTHROID [Concomitant]
  7. NEXIUM                             /01479302/ [Concomitant]
  8. ASPIRIN [Concomitant]

REACTIONS (3)
  - Arterial occlusive disease [Unknown]
  - Carotid artery stenosis [Unknown]
  - Muscle spasms [Recovered/Resolved]
